FAERS Safety Report 5073541-4 (Version None)
Quarter: 2006Q3

REPORT INFORMATION
  Report Type: 
  Country: None (occurrence: None)
  Receive Date: 20060808
  Receipt Date: 20060801
  Transmission Date: 20061208
  Serious: Yes (Hospitalization, Other)
  Sender: FDA-Public Use
  Company Number: US-BRISTOL-MYERS SQUIBB COMPANY-13462502

PATIENT
  Sex: Female

DRUGS (4)
  1. CYTOXAN [Suspect]
     Indication: BREAST CANCER METASTATIC
  2. METHOTREXATE [Suspect]
     Indication: BREAST CANCER METASTATIC
  3. FLUOROURACIL [Suspect]
     Indication: BREAST CANCER METASTATIC
  4. TAXOTERE [Suspect]
     Indication: BREAST CANCER METASTATIC
     Dates: start: 20060311, end: 20060311

REACTIONS (2)
  - MALIGNANT NEOPLASM PROGRESSION [None]
  - PLEURAL EFFUSION [None]
